FAERS Safety Report 4552953-9 (Version None)
Quarter: 2005Q1

REPORT INFORMATION
  Report Type: 
  Country: None (occurrence: None)
  Receive Date: 20050113
  Receipt Date: 20050107
  Transmission Date: 20050727
  Serious: Yes (Hospitalization)
  Sender: FDA-Public Use
  Company Number: 211583

PATIENT
  Age: 24 Year
  Sex: Female

DRUGS (1)
  1. XOLAIR [Suspect]
     Dates: start: 20050105, end: 20050105

REACTIONS (3)
  - ANAPHYLACTIC REACTION [None]
  - DIZZINESS [None]
  - FORMICATION [None]
